FAERS Safety Report 7645072-6 (Version None)
Quarter: 2011Q3

REPORT INFORMATION
  Report Type: 
  Country: None (occurrence: None)
  Receive Date: 20110725
  Receipt Date: 20110707
  Transmission Date: 20111222
  Serious: Yes (Other)
  Sender: FDA-Public Use
  Company Number: AUR-APL-2011-04016

PATIENT
  Age: 42 Year
  Sex: Female

DRUGS (3)
  1. MIRTAZAPINE [Suspect]
     Indication: DEPRESSION
     Dosage: (7.5 MG,1 D)
  2. FLUOXETINE [Suspect]
     Indication: DEPRESSION
  3. ESCITALOPRAM [Suspect]
     Indication: DEPRESSION
     Dosage: (20 MG,1 D)

REACTIONS (11)
  - IRRITABILITY [None]
  - LOGORRHOEA [None]
  - SUICIDAL IDEATION [None]
  - PAIN [None]
  - ASTHENIA [None]
  - DEPRESSED MOOD [None]
  - PSYCHOMOTOR HYPERACTIVITY [None]
  - DEPRESSION [None]
  - SPEECH DISORDER [None]
  - MANIA [None]
  - ANHEDONIA [None]
